FAERS Safety Report 6567723-X (Version None)
Quarter: 2010Q1

REPORT INFORMATION
  Report Type: 
  Country: None (occurrence: None)
  Receive Date: 20100203
  Receipt Date: 20100127
  Transmission Date: 20100710
  Serious: Yes (Hospitalization, Other)
  Sender: FDA-Public Use
  Company Number: US-PFIZER INC-2009315332

PATIENT
  Age: 43 Year
  Sex: Male

DRUGS (5)
  1. DILANTIN [Suspect]
     Dosage: 330 MG, 1X/DAY
  2. DILANTIN [Suspect]
     Dosage: UNK
  3. NIFEDIPINE [Concomitant]
     Dosage: 90 MG, DAILY
  4. RAMIPRIL [Concomitant]
     Dosage: 10 MG, DAILY
  5. HYDROCHLOROTHIAZIDE [Concomitant]
     Dosage: 25 MG, DAILY

REACTIONS (2)
  - ANTICONVULSANT DRUG LEVEL DECREASED [None]
  - GRAND MAL CONVULSION [None]
